FAERS Safety Report 10047433 (Version 3)
Quarter: 2014Q2

REPORT INFORMATION
  Report Type: Spontaneous
  Country: JP (occurrence: JP)
  Receive Date: 20140331
  Receipt Date: 20140428
  Transmission Date: 20141212
  Serious: Yes (Death)
  Sender: FDA-Public Use
  Company Number: PHHY2014JP023273

PATIENT
  Age: 52 Year
  Sex: Male

DRUGS (6)
  1. SLOW K [Suspect]
     Indication: HYPOKALAEMIA
     Dosage: 2400 MG, DAILY
     Route: 048
     Dates: start: 20140218
  2. RESLIN [Concomitant]
     Dosage: UNK UKN, UNK
     Route: 048
     Dates: start: 20140218
  3. DIAZEPAM [Concomitant]
     Dosage: UNK UKN, UNK
     Dates: start: 20140218
  4. BENZALIN [Concomitant]
     Dosage: UNK UKN, UNK
     Route: 048
     Dates: start: 20140218
  5. MEILAX [Concomitant]
     Dosage: UNK UKN, UNK
     Route: 048
     Dates: start: 20140218
  6. YOKUKANSAN [Concomitant]
     Dosage: UNK UKN, UNK
     Dates: start: 20140218

REACTIONS (2)
  - Asthenia [Fatal]
  - Medication residue present [Recovered/Resolved]
